FAERS Safety Report 9008212 (Version 2)
Quarter: 2013Q2

REPORT INFORMATION
  Report Type: Spontaneous
  Country: US (occurrence: None)
  Receive Date: 20120518
  Receipt Date: 20120820
  Transmission Date: 20140414
  Serious: Yes (Other)
  Sender: FDA-Public Use
  Company Number: 1000029005

PATIENT
  Age: 71 Year
  Sex: Female

DRUGS (5)
  1. VIIBRYD [Suspect]
     Indication: BIPOLAR DISORDER
     Route: 048
     Dates: start: 20120308, end: 20120314
  2. SERTRALINE (SERTRALINE) (SERTRALINE) [Concomitant]
  3. SIMVASTATIN (SIMVASTATIN) (SIMVASTATIN) [Concomitant]
  4. LISINOPRIL (LISINOPRIL) (LISINOPRIL) [Concomitant]
  5. VIIBRYD [Suspect]
     Indication: BIPOLAR DISORDER
     Route: 048
     Dates: start: 20120322, end: 201204

REACTIONS (8)
  - Increased appetite [None]
  - Fatigue [None]
  - Insomnia [None]
  - Off label use [None]
  - Malaise [None]
  - Head discomfort [None]
  - Hallucination, auditory [None]
  - Blood pressure increased [None]
